FAERS Safety Report 8974223 (Version 1)
Quarter: 2012Q4

REPORT INFORMATION
  Report Type: Spontaneous
  Country: NL (occurrence: None)
  Receive Date: 20121212
  Receipt Date: 20121212
  Transmission Date: 20130627
  Serious: Yes (Death, Hospitalization, Disabling, Other)
  Sender: FDA-Public Use
  Company Number: FK201203706

PATIENT
  Age: 75 Year
  Sex: Female

DRUGS (5)
  1. PAMIDRONATE [Suspect]
     Indication: OSTEOPOROSIS
     Dosage: 1 in 3 M
     Route: 042
  2. ZOLEDRONIC ACID [Suspect]
     Indication: OSTEOPOROSIS
     Dosage: 1 in 12 M
     Route: 042
  3. CALCIUM + VITAMIN D(CALCIUM D3 /01483701/) [Concomitant]
  4. PREDNISONE (PREDNISONE) [Concomitant]
  5. AZATHIOPRINE (AZATHIOPRINE) [Concomitant]

REACTIONS (6)
  - Osteonecrosis of jaw [None]
  - Malnutrition [None]
  - Respiratory failure [None]
  - Candida pneumonia [None]
  - Infection [None]
  - Pseudomonas test positive [None]
